FAERS Safety Report 8826466 (Version 1)
Quarter: 2012Q4

REPORT INFORMATION
  Report Type: Report from Study
  Country: SE (occurrence: SE)
  Receive Date: 20121005
  Receipt Date: 20121005
  Transmission Date: 20130627
  Serious: Yes (Hospitalization)
  Sender: FDA-Public Use
  Company Number: SE-ABBOTT-12P-150-0988673-00

PATIENT
  Sex: Male
  Weight: 96.8 kg

DRUGS (15)
  1. HUMIRA [Suspect]
     Indication: RHEUMATOID ARTHRITIS
     Route: 058
     Dates: start: 20090417
  2. METHOTREXATE [Suspect]
     Indication: RHEUMATOID ARTHRITIS
     Route: 048
     Dates: start: 20090417
  3. NORMORIX [Concomitant]
     Indication: HYPERTENSION
     Dates: start: 200403
  4. NORMORIX [Concomitant]
     Indication: PROPHYLAXIS
  5. METOPROLOL [Concomitant]
     Indication: HYPERTENSION
     Dates: start: 200503
  6. METOPROLOL [Concomitant]
     Indication: PROPHYLAXIS
  7. ENALAPRIL [Concomitant]
     Indication: HYPERTENSION
     Dates: start: 200812, end: 201008
  8. ENALAPRIL [Concomitant]
     Indication: PROPHYLAXIS
     Dates: start: 201008
  9. TROMBYL [Concomitant]
     Indication: THROMBOSIS PROPHYLAXIS
     Dates: start: 200501
  10. SERETIDE DISCUS [Concomitant]
     Indication: CHRONIC OBSTRUCTIVE PULMONARY DISEASE
     Dates: start: 200403
  11. FOLSON [Concomitant]
     Indication: VITAMIN SUPPLEMENTATION
     Dates: start: 200407
  12. ZOTON [Concomitant]
     Indication: DYSPEPSIA
     Dosage: Every second day
     Dates: start: 200410, end: 201101
  13. ZOTON [Concomitant]
     Indication: DRUG THERAPY
  14. ORUDIS RETARD [Concomitant]
     Indication: RHEUMATOID ARTHRITIS
     Dates: start: 200403
  15. ALVEDON [Concomitant]
     Indication: RHEUMATOID ARTHRITIS
     Dates: start: 200403

REACTIONS (1)
  - Pleurisy [Recovered/Resolved]
